FAERS Safety Report 7803511-1 (Version None)
Quarter: 2011Q4

REPORT INFORMATION
  Report Type: 
  Country: None (occurrence: None)
  Receive Date: 20111008
  Receipt Date: 20110929
  Transmission Date: 20120403
  Serious: Yes (Death)
  Sender: FDA-Public Use
  Company Number: AR-AMGEN-ARGSP2011045439

PATIENT
  Age: 74 Year
  Sex: Female

DRUGS (2)
  1. ACETAMINOPHEN [Concomitant]
  2. ENBREL [Suspect]
     Indication: RHEUMATOID ARTHRITIS
     Dosage: 50 MG, WEEKLY
     Route: 058
     Dates: start: 20080406

REACTIONS (1)
  - CARDIO-RESPIRATORY ARREST [None]
